FAERS Safety Report 25208973 (Version 1)
Quarter: 2025Q2

REPORT INFORMATION
  Report Type: Spontaneous
  Country: GB (occurrence: GB)
  Receive Date: 20250417
  Receipt Date: 20250417
  Transmission Date: 20250716
  Serious: Yes (Other)
  Sender: SANOFI AVENTIS
  Company Number: GB-MHRA-TPP37312199C9844038YC1744618370181

PATIENT
  Age: 87 Year
  Sex: Female
  Weight: 60 kg

DRUGS (9)
  1. IRBESARTAN [Suspect]
     Active Substance: IRBESARTAN
     Indication: Ill-defined disorder
     Dosage: 150 MG, QD
     Route: 048
     Dates: start: 20250110
  2. CLOBETASONE BUTYRATE [Concomitant]
     Active Substance: CLOBETASONE BUTYRATE
     Indication: Ill-defined disorder
     Dosage: 1 DF, Q12H
     Route: 061
     Dates: start: 20250120, end: 20250127
  3. Mepilex border comfort lite [Concomitant]
     Indication: Ill-defined disorder
     Dates: start: 20250127, end: 20250210
  4. BISOPROLOL [Concomitant]
     Active Substance: BISOPROLOL
     Indication: Ill-defined disorder
     Dosage: 1 DF, QD
     Route: 048
     Dates: start: 20250317, end: 20250414
  5. Evolve Carmellose [Concomitant]
     Indication: Ill-defined disorder
     Dosage: INTO BOTH EYES
     Route: 031
     Dates: start: 20240925
  6. ATORVASTATIN [Concomitant]
     Active Substance: ATORVASTATIN
     Indication: Ill-defined disorder
     Dosage: 1 DF, QD
     Route: 048
     Dates: start: 20240925
  7. LEVOTHYROXINE [Concomitant]
     Active Substance: LEVOTHYROXINE
     Indication: Ill-defined disorder
     Dosage: IN THE MORNING AT LEAST 30 MINU...
     Route: 048
     Dates: start: 20240925
  8. OMEPRAZOLE [Concomitant]
     Active Substance: OMEPRAZOLE
     Indication: Ill-defined disorder
     Dosage: 1 DF, QD
     Route: 048
     Dates: start: 20240925
  9. ACETAMINOPHEN [Concomitant]
     Active Substance: ACETAMINOPHEN
     Indication: Ill-defined disorder
     Dosage: TAKE ONE TO TWO TABLETS UP TO FOUR TIMES A DAY ...
     Route: 048
     Dates: start: 20240925

REACTIONS (1)
  - Lip swelling [Recovered/Resolved]

NARRATIVE: CASE EVENT DATE: 20250414
